FAERS Safety Report 4831329-0 (Version None)
Quarter: 2005Q4

REPORT INFORMATION
  Report Type: 
  Country: None (occurrence: None)
  Receive Date: 20051116
  Receipt Date: 20051116
  Transmission Date: 20060501
  Serious: Yes (Other)
  Sender: FDA-Public Use
  Company Number: None

PATIENT
  Age: 36 Year
  Sex: Female
  Weight: 53.5244 kg

DRUGS (2)
  1. EFFEXOR [Suspect]
     Indication: BIPOLAR II DISORDER
     Dates: start: 20050601, end: 20050805
  2. EFFEXOR [Suspect]
     Indication: CYCLOTHYMIC DISORDER
     Dates: start: 20050601, end: 20050805

REACTIONS (34)
  - AGITATION [None]
  - AMNESIA [None]
  - ANXIETY [None]
  - BLOOD PRESSURE INCREASED [None]
  - BODY TEMPERATURE FLUCTUATION [None]
  - BRADYPHRENIA [None]
  - CHILLS [None]
  - CONVULSION [None]
  - CRYING [None]
  - DISTURBANCE IN ATTENTION [None]
  - DIZZINESS [None]
  - DRUG WITHDRAWAL SYNDROME [None]
  - DYSPNOEA [None]
  - FATIGUE [None]
  - HEADACHE [None]
  - HOT FLUSH [None]
  - HYPOAESTHESIA [None]
  - HYPOMANIA [None]
  - INSOMNIA [None]
  - IRRITABILITY [None]
  - MAJOR DEPRESSION [None]
  - MENTAL STATUS CHANGES [None]
  - MIGRAINE [None]
  - MOOD SWINGS [None]
  - NAUSEA [None]
  - OBSESSIVE-COMPULSIVE DISORDER [None]
  - PALPITATIONS [None]
  - PANIC ATTACK [None]
  - PARAESTHESIA [None]
  - PYREXIA [None]
  - SEROTONIN SYNDROME [None]
  - SOCIAL PHOBIA [None]
  - TINNITUS [None]
  - VERTIGO [None]
